FAERS Safety Report 23842613 (Version 1)
Quarter: 2024Q2

REPORT INFORMATION
  Report Type: Spontaneous
  Country: US (occurrence: US)
  Receive Date: 20240510
  Receipt Date: 20240510
  Transmission Date: 20240716
  Serious: Yes (Other)
  Sender: FDA-Public Use
  Company Number: US-TEVA-VS-3194375

PATIENT

DRUGS (1)
  1. TOPIRAMATE [Suspect]
     Active Substance: TOPIRAMATE
     Indication: Migraine
     Route: 065
     Dates: start: 202310

REACTIONS (6)
  - Nephrolithiasis [Unknown]
  - Tremor [Unknown]
  - Restlessness [Unknown]
  - Nausea [Unknown]
  - Product substitution issue [Unknown]
  - Weight increased [Unknown]
